FAERS Safety Report 6435586-9 (Version None)
Quarter: 2009Q4

REPORT INFORMATION
  Report Type: 
  Country: None (occurrence: None)
  Receive Date: 20091110
  Receipt Date: 20071031
  Transmission Date: 20100525
  Serious: No
  Sender: FDA-Public Use
  Company Number: AECAN200700257

PATIENT
  Age: 42 Year
  Sex: Female

DRUGS (4)
  1. GAMUNEX [Suspect]
     Indication: IDIOPATHIC THROMBOCYTOPENIC PURPURA
     Dosage: 140 GM;TOTAL;IV
     Route: 042
     Dates: start: 20070921, end: 20070927
  2. REMICADE [Concomitant]
  3. PANTOPRAZOLE [Concomitant]
  4. VITAMIN B-12 [Concomitant]

REACTIONS (4)
  - DYSPNOEA [None]
  - HYPOAESTHESIA [None]
  - PLEURITIC PAIN [None]
  - URTICARIA [None]
